FAERS Safety Report 6920622-3 (Version None)
Quarter: 2010Q3

REPORT INFORMATION
  Report Type: 
  Country: None (occurrence: None)
  Receive Date: 20100812
  Receipt Date: 20100806
  Transmission Date: 20110219
  Serious: Yes (Hospitalization, Other)
  Sender: FDA-Public Use
  Company Number: FR-BRISTOL-MYERS SQUIBB COMPANY-15229941

PATIENT
  Age: 35 Year
  Sex: Male
  Weight: 84 kg

DRUGS (4)
  1. REYATAZ [Suspect]
     Dosage: ONE INTAKE DAILY
     Route: 048
     Dates: start: 20061001
  2. NORVIR [Suspect]
     Route: 048
     Dates: start: 20061011
  3. TRUVADA [Suspect]
     Dosage: ONE INTAKE DAILY
     Route: 048
     Dates: start: 20061001
  4. CHAMPIX [Suspect]
     Indication: TOBACCO ABUSE
     Dates: start: 20091128, end: 20100105

REACTIONS (5)
  - DEPRESSION [None]
  - HAEMATURIA [None]
  - NEPHROLITHIASIS [None]
  - PERIPHERAL SENSORY NEUROPATHY [None]
  - SUICIDAL IDEATION [None]
